FAERS Safety Report 12241078 (Version 1)
Quarter: 2016Q2

REPORT INFORMATION
  Report Type: Spontaneous
  Country: US (occurrence: None)
  Receive Date: 20160405
  Receipt Date: 20160405
  Transmission Date: 20160815
  Serious: Yes (Hospitalization, Disabling)
  Sender: FDA-Public Use
  Company Number: None

PATIENT
  Age: 45 Year
  Sex: Male
  Weight: 70.31 kg

DRUGS (1)
  1. LEVAQUIN [Suspect]
     Active Substance: LEVOFLOXACIN
     Indication: PROSTATITIS
     Route: 048
     Dates: start: 20051103, end: 20051104

REACTIONS (5)
  - Dehydration [None]
  - Tendon pain [None]
  - Muscular weakness [None]
  - Eye disorder [None]
  - Adverse event [None]

NARRATIVE: CASE EVENT DATE: 20051105
